FAERS Safety Report 12388696 (Version 1)
Quarter: 2016Q2

REPORT INFORMATION
  Report Type: Spontaneous
  Country: US (occurrence: US)
  Receive Date: 20160520
  Receipt Date: 20160520
  Transmission Date: 20160815
  Serious: Yes (Other)
  Sender: FDA-Public Use
  Company Number: US-PFIZER INC-2016263298

PATIENT
  Age: 53 Year
  Sex: Female

DRUGS (3)
  1. NUCYNTA [Suspect]
     Active Substance: TAPENTADOL HYDROCHLORIDE
     Indication: PAIN
     Dosage: 50 MG, UNK
     Route: 048
     Dates: start: 20160302, end: 20160306
  2. MEPROBAMATE. [Suspect]
     Active Substance: MEPROBAMATE
     Indication: ANXIETY
     Dosage: 400 MG, 4X/DAY
     Route: 048
     Dates: start: 1978
  3. EFFEXOR [Suspect]
     Active Substance: VENLAFAXINE HYDROCHLORIDE
     Dosage: 75 MG, 3X/DAY
     Route: 048

REACTIONS (7)
  - Drug ineffective [Recovered/Resolved]
  - Restlessness [Recovered/Resolved]
  - Muscle spasms [Recovered/Resolved]
  - Tremor [Recovered/Resolved]
  - Serotonin syndrome [Recovered/Resolved]
  - Feeling jittery [Recovered/Resolved]
  - Pyrexia [Recovered/Resolved]

NARRATIVE: CASE EVENT DATE: 20160304
